FAERS Safety Report 9216405 (Version 1)
Quarter: 2013Q2

REPORT INFORMATION
  Report Type: Spontaneous
  Country: US (occurrence: US)
  Receive Date: 20130408
  Receipt Date: 20130408
  Transmission Date: 20140414
  Serious: No
  Sender: FDA-Public Use
  Company Number: US-009507513-1304USA002692

PATIENT
  Age: 40 Year
  Sex: Female

DRUGS (3)
  1. SAPHRIS [Suspect]
     Dosage: 10 MG, BID
     Route: 060
  2. HALDOL [Concomitant]
  3. CLOZARIL [Concomitant]

REACTIONS (1)
  - Drooling [Unknown]
